FAERS Safety Report 5609266-3 (Version None)
Quarter: 2008Q1

REPORT INFORMATION
  Report Type: 
  Country: None (occurrence: None)
  Receive Date: 20080131
  Receipt Date: 20080124
  Transmission Date: 20080703
  Serious: Yes (Other)
  Sender: FDA-Public Use
  Company Number: US-JNJFOC-20080105550

PATIENT
  Age: 34 Year
  Sex: Female

DRUGS (4)
  1. ARESTIN [Suspect]
     Indication: DRUG USE FOR UNKNOWN INDICATION
     Route: 004
  2. SINGULAIR [Concomitant]
     Route: 065
  3. BCP [Concomitant]
     Route: 065
  4. INHALANT DROPS [Concomitant]
     Route: 065

REACTIONS (2)
  - THROAT TIGHTNESS [None]
  - URTICARIA [None]
